FAERS Safety Report 5261469-6 (Version None)
Quarter: 2007Q1

REPORT INFORMATION
  Report Type: 
  Country: None (occurrence: None)
  Receive Date: 20070307
  Receipt Date: 20070302
  Transmission Date: 20070707
  Serious: Yes (Life-Threatening, Other)
  Sender: FDA-Public Use
  Company Number: 2006SP005317

PATIENT
  Age: 62 Year
  Sex: Male
  Weight: 78 kg

DRUGS (7)
  1. TEMODAL [Suspect]
     Indication: GLIOMA
     Dosage: 150 MG/M2; QD; PO
     Route: 048
     Dates: start: 20061005, end: 20061009
  2. NIDRAN [Concomitant]
  3. INTEFERON BETA [Concomitant]
  4. ZANTAC [Concomitant]
  5. EXCEGRAN [Concomitant]
  6. RINDERON [Concomitant]
  7. EBRANTIL [Concomitant]

REACTIONS (5)
  - BLOOD ALBUMIN DECREASED [None]
  - BLOOD LACTATE DEHYDROGENASE INCREASED [None]
  - INTERSTITIAL LUNG DISEASE [None]
  - PNEUMOCYSTIS JIROVECI PNEUMONIA [None]
  - PROTEIN TOTAL DECREASED [None]
